FAERS Safety Report 5760323-0 (Version None)
Quarter: 2008Q2

REPORT INFORMATION
  Report Type: 
  Country: None (occurrence: None)
  Receive Date: 20080605
  Receipt Date: 20080528
  Transmission Date: 20081010
  Serious: Yes (Congenital Anomaly, Other)
  Sender: FDA-Public Use
  Company Number: GB-ABBOTT-08P-167-0441900-00

PATIENT
  Sex: Female

DRUGS (1)
  1. VALPROATE SODIUM [Suspect]
     Indication: DRUG EXPOSURE DURING PREGNANCY
     Route: 064

REACTIONS (32)
  - ABNORMAL BEHAVIOUR [None]
  - AGGRESSION [None]
  - ANOMALY OF ORBIT, CONGENITAL [None]
  - ASTHMA [None]
  - BLOOD THYROID STIMULATING HORMONE INCREASED [None]
  - CONGENITAL EYE DISORDER [None]
  - CONGENITAL FOOT MALFORMATION [None]
  - CONGENITAL HAND MALFORMATION [None]
  - CONGENITAL NOSE MALFORMATION [None]
  - CONSTIPATION [None]
  - CONVULSION [None]
  - COORDINATION ABNORMAL [None]
  - DEAFNESS BILATERAL [None]
  - DEVELOPMENTAL DELAY [None]
  - DISTURBANCE IN ATTENTION [None]
  - DRUG EXPOSURE DURING PREGNANCY [None]
  - DYSMORPHISM [None]
  - EAR INFECTION [None]
  - EAR MALFORMATION [None]
  - EYE DISORDER [None]
  - FOETAL ANTICONVULSANT SYNDROME [None]
  - FOOT DEFORMITY [None]
  - HEAD LAG [None]
  - HYPERTELORISM OF ORBIT [None]
  - HYPOKINESIA [None]
  - HYPOTHYROIDISM [None]
  - LIGAMENT LAXITY [None]
  - LIP DISORDER [None]
  - LOWER RESPIRATORY TRACT INFECTION [None]
  - SKULL MALFORMATION [None]
  - SLEEP DISORDER [None]
  - SPEECH DISORDER DEVELOPMENTAL [None]
